FAERS Safety Report 10668383 (Version 1)
Quarter: 2014Q4

REPORT INFORMATION
  Report Type: Spontaneous
  Country: US (occurrence: None)
  Receive Date: 20141217
  Receipt Date: 20141217
  Transmission Date: 20150529
  Serious: No
  Sender: FDA-Public Use
  Company Number: 2014CT000168

PATIENT
  Age: 61 Year
  Sex: Male

DRUGS (1)
  1. KORLYM [Suspect]
     Active Substance: MIFEPRISTONE
     Indication: CUSHING^S SYNDROME
     Dates: start: 2014

REACTIONS (2)
  - Confusional state [None]
  - Dizziness postural [None]

NARRATIVE: CASE EVENT DATE: 2014
